FAERS Safety Report 5024786-0 (Version None)
Quarter: 2006Q2

REPORT INFORMATION
  Report Type: 
  Country: None (occurrence: None)
  Receive Date: 20060613
  Receipt Date: 20060515
  Transmission Date: 20061013
  Serious: Yes (Other)
  Sender: FDA-Public Use
  Company Number: FR-GILEAD-2006-0009595

PATIENT
  Sex: Male
  Weight: 54 kg

DRUGS (4)
  1. HEPSERA [Suspect]
     Indication: HEPATITIS B
     Route: 048
     Dates: start: 20030701
  2. HEPSERA [Suspect]
     Route: 048
     Dates: start: 20021101, end: 20030701
  3. EPIVIR [Concomitant]
     Indication: HEPATITIS B
     Route: 048
     Dates: start: 20020101
  4. RENITEC [Concomitant]
     Indication: PROTEINURIA
     Dates: start: 19960601

REACTIONS (4)
  - BLOOD CREATINE PHOSPHOKINASE INCREASED [None]
  - BLOOD CREATINE PHOSPHOKINASE MB INCREASED [None]
  - DRUG INEFFECTIVE [None]
  - PRESCRIBED OVERDOSE [None]
